FAERS Safety Report 7377516-1 (Version None)
Quarter: 2011Q1

REPORT INFORMATION
  Report Type: 
  Country: None (occurrence: None)
  Receive Date: 20110328
  Receipt Date: 20110318
  Transmission Date: 20110831
  Serious: Yes (Death)
  Sender: FDA-Public Use
  Company Number: US-CELGENEUS-163-21880-11032203

PATIENT
  Sex: Male

DRUGS (9)
  1. REVLIMID [Suspect]
     Dosage: 10 MILLIGRAM
     Route: 048
     Dates: start: 20110101
  2. OXYCODONE [Concomitant]
     Route: 065
  3. REVLIMID [Suspect]
     Indication: MULTIPLE MYELOMA
     Dosage: 15 MILLIGRAM
     Route: 048
     Dates: start: 20090501
  4. ACYCLOVIR [Concomitant]
     Route: 065
  5. MULTI-VITAMINS [Concomitant]
     Route: 065
  6. GABAPENTIN [Concomitant]
     Route: 065
  7. ASPIRIN [Concomitant]
     Route: 065
  8. REVLIMID [Suspect]
     Dosage: 15 MILLIGRAM
     Route: 048
     Dates: start: 20110201
  9. MS CONTIN [Concomitant]
     Route: 065

REACTIONS (1)
  - DEATH [None]
